FAERS Safety Report 8440180-4 (Version None)
Quarter: 2012Q2

REPORT INFORMATION
  Report Type: 
  Country: None (occurrence: None)
  Receive Date: 20120615
  Receipt Date: 20120613
  Transmission Date: 20120825
  Serious: Yes (Hospitalization)
  Sender: FDA-Public Use
  Company Number: US-GILEAD-2011-0046743

PATIENT
  Age: 24 Year
  Sex: Female

DRUGS (2)
  1. ETONOGESTREL [Concomitant]
     Dosage: UNK
     Dates: start: 20101205, end: 20110627
  2. TENOFOVIR DISOPROXIL FUMARATE [Suspect]
     Indication: PROPHYLAXIS AGAINST HIV INFECTION
     Dosage: UNK
     Dates: start: 20100106, end: 20110525

REACTIONS (2)
  - OBSTRUCTED LABOUR [None]
  - PREGNANCY [None]
